FAERS Safety Report 21884030 (Version 1)
Quarter: 2023Q1

REPORT INFORMATION
  Report Type: Spontaneous
  Country: CA (occurrence: CA)
  Receive Date: 20230119
  Receipt Date: 20230119
  Transmission Date: 20230417
  Serious: Yes (Other)
  Sender: FDA-Public Use
  Company Number: CA-BAYER-2023P002930

PATIENT
  Sex: Male

DRUGS (4)
  1. EYLEA [Suspect]
     Active Substance: AFLIBERCEPT
     Indication: Age-related macular degeneration
     Dosage: EVERY 5 WEEKS, SOLUTION FOR INJECTION, 40MG/ML
     Route: 031
     Dates: start: 201911, end: 202011
  2. EYLEA [Suspect]
     Active Substance: AFLIBERCEPT
     Dosage: EVERY 3 WEEKS, SOLUTION FOR INJECTION, 40MG/ML
     Route: 031
     Dates: start: 202012, end: 202102
  3. SIMVASTATIN [Concomitant]
     Active Substance: SIMVASTATIN
     Indication: Product used for unknown indication
     Dosage: EVERY 5-6 WEEKS
     Dates: start: 201812, end: 201911
  4. BEOVU [Concomitant]
     Active Substance: BROLUCIZUMAB-DBLL
     Indication: Product used for unknown indication
     Dosage: EVERY 6 WEEKS
     Dates: start: 202103, end: 202212

REACTIONS (2)
  - Visual acuity reduced [Unknown]
  - Inappropriate schedule of product administration [Unknown]
